FAERS Safety Report 25698393 (Version 1)
Quarter: 2025Q3

REPORT INFORMATION
  Report Type: Report from Study
  Country: US (occurrence: US)
  Receive Date: 20250819
  Receipt Date: 20250819
  Transmission Date: 20251020
  Serious: Yes (Hospitalization, Disabling, Other)
  Sender: ABBVIE
  Company Number: US-ABBVIE-6418718

PATIENT
  Age: 25 Year
  Sex: Male

DRUGS (1)
  1. CREON [Suspect]
     Active Substance: PANCRELIPASE AMYLASE\PANCRELIPASE LIPASE\PANCRELIPASE PROTEASE
     Indication: Product used for unknown indication
     Route: 048
     Dates: start: 20190814

REACTIONS (7)
  - Brain injury [Unknown]
  - Coma [Unknown]
  - Asphyxia [Unknown]
  - Seizure [Unknown]
  - Vomiting [Unknown]
  - Disability [Unknown]
  - Pulse absent [Unknown]

NARRATIVE: CASE EVENT DATE: 20190101
